FAERS Safety Report 9509691 (Version 1)
Quarter: 2013Q3

REPORT INFORMATION
  Report Type: Spontaneous
  Country: US (occurrence: US)
  Receive Date: 20130909
  Receipt Date: 20130909
  Transmission Date: 20140515
  Serious: No
  Sender: FDA-Public Use
  Company Number: US-BRISTOL-MYERS SQUIBB COMPANY-17177874

PATIENT
  Age: 63 Year
  Sex: Female
  Weight: 90.7 kg

DRUGS (2)
  1. ABILIFY [Suspect]
     Indication: BIPOLAR DISORDER
     Dosage: DOSE INCREASED TO 20MG,THEN 30MG
     Dates: start: 2012, end: 2012
  2. LITHIUM [Suspect]
     Dosage: REDUCED TO 300 MG

REACTIONS (2)
  - Constipation [Recovered/Resolved]
  - Dysgraphia [Unknown]
